FAERS Safety Report 5433367-6 (Version None)
Quarter: 2007Q3

REPORT INFORMATION
  Report Type: 
  Country: None (occurrence: None)
  Receive Date: 20070831
  Receipt Date: 20070621
  Transmission Date: 20080115
  Serious: No
  Sender: FDA-Public Use
  Company Number: A0658802A

PATIENT
  Age: 47 Year
  Sex: Female

DRUGS (2)
  1. ALLI [Suspect]
     Route: 048
     Dates: start: 20070617, end: 20070620
  2. XENICAL [Concomitant]
     Indication: DRUG USE FOR UNKNOWN INDICATION
     Route: 048

REACTIONS (1)
  - DRUG INEFFECTIVE [None]
